FAERS Safety Report 9768144 (Version 2)
Quarter: 2013Q4

REPORT INFORMATION
  Report Type: Spontaneous
  Country: PR (occurrence: PR)
  Receive Date: 20131217
  Receipt Date: 20131217
  Transmission Date: 20140711
  Serious: No
  Sender: FDA-Public Use
  Company Number: PR-BAXTER-2013BAX047852

PATIENT
  Age: 40 Day
  Sex: Male

DRUGS (7)
  1. 70% DEXTROSE INJECTION USP [Suspect]
     Indication: PARENTERAL NUTRITION
     Route: 065
  2. 10% PREMASOL [Suspect]
     Indication: PARENTERAL NUTRITION
     Route: 065
  3. MAGNESIUM [Suspect]
     Indication: PARENTERAL NUTRITION
     Route: 065
  4. POTASSIUM CHLORIDE [Suspect]
     Indication: PARENTERAL NUTRITION
     Route: 065
  5. SODIUM CHLORIDE [Suspect]
     Indication: PARENTERAL NUTRITION
     Route: 065
  6. L-CARNITINE [Suspect]
     Indication: PARENTERAL NUTRITION
     Route: 065
  7. MVI-PEDIATRIC [Suspect]
     Indication: PARENTERAL NUTRITION
     Route: 065

REACTIONS (1)
  - Hypercalcaemia [Recovered/Resolved]
